FAERS Safety Report 8698298 (Version 3)
Quarter: 2012Q4

REPORT INFORMATION
  Report Type: 
  Country: CA (occurrence: CA)
  Receive Date: 20120802
  Receipt Date: 20120914
  Transmission Date: 20130627
  Serious: Yes (Life-Threatening, Hospitalization, Disabling, Other)
  Sender: FDA-Public Use
  Company Number: PHHY2012CA066253

PATIENT
  Age: 85 Year
  Sex: Female

DRUGS (8)
  1. ACLASTA [Suspect]
     Indication: OSTEOPOROSIS
     Dosage: UNK UKN, UNK
     Route: 042
     Dates: start: 20090804
  2. ACLASTA [Suspect]
     Dosage: UNK UKN, UNK
     Route: 042
     Dates: start: 20100817
  3. ACLASTA [Suspect]
     Dosage: UNK UKN, UNK
     Route: 042
     Dates: start: 20110912
  4. SYNTHROID [Concomitant]
     Dosage: 0.1 mg, UNK
  5. ADVAIR [Concomitant]
  6. ATROVENT [Concomitant]
  7. PLAVIX [Concomitant]
     Dosage: 75 mg, UNK
  8. CHOLESTYRAMINE [Concomitant]

REACTIONS (9)
  - Pelvic fracture [Recovering/Resolving]
  - Acetabulum fracture [Recovering/Resolving]
  - Pubis fracture [Recovering/Resolving]
  - Thoracic vertebral fracture [Recovering/Resolving]
  - Fall [Recovering/Resolving]
  - Pelvic haematoma [Recovering/Resolving]
  - Anaemia [Recovering/Resolving]
  - Hip fracture [Recovering/Resolving]
  - Drug ineffective [Recovering/Resolving]
